FAERS Safety Report 9736668 (Version 2)
Quarter: 2013Q4

REPORT INFORMATION
  Report Type: Spontaneous
  Country: US (occurrence: US)
  Receive Date: 20131206
  Receipt Date: 20131206
  Transmission Date: 20140711
  Serious: Yes (Hospitalization)
  Sender: FDA-Public Use
  Company Number: US-GILEAD-2009-0022790

PATIENT
  Age: 76 Year
  Sex: Male
  Weight: 86.18 kg

DRUGS (15)
  1. LETAIRIS [Suspect]
     Indication: PULMONARY ARTERIAL HYPERTENSION
     Route: 048
     Dates: start: 20090511, end: 20090621
  2. COUMADIN [Concomitant]
  3. BUMEX [Concomitant]
  4. CARVEDILOL [Concomitant]
  5. HUMALOG [Concomitant]
  6. ALLOPURINOL [Concomitant]
  7. AMBIEN [Concomitant]
  8. TRAVATAN [Concomitant]
  9. LIPITOR [Concomitant]
  10. NEURONTIN [Concomitant]
  11. MILRINONE LACTATE [Concomitant]
  12. LAMISIL [Concomitant]
  13. NEXIUM [Concomitant]
  14. COLCHICINE [Concomitant]
  15. EPLERENONE [Concomitant]

REACTIONS (3)
  - Fluid overload [Recovering/Resolving]
  - Gait disturbance [Unknown]
  - Oedema [Unknown]
